FAERS Safety Report 12355150 (Version 1)
Quarter: 2016Q2

REPORT INFORMATION
  Report Type: Spontaneous
  Country: US (occurrence: None)
  Receive Date: 20160510
  Receipt Date: 20160510
  Transmission Date: 20160815
  Serious: No
  Sender: FDA-Public Use
  Company Number: None

PATIENT
  Age: 36 Year
  Sex: Male

DRUGS (4)
  1. RITUXAN [Concomitant]
     Active Substance: RITUXIMAB
  2. AMPYRA [Suspect]
     Active Substance: DALFAMPRIDINE
     Indication: MULTIPLE SCLEROSIS
     Route: 048
     Dates: start: 20151001
  3. BACLOFEN. [Concomitant]
     Active Substance: BACLOFEN
  4. SILDENAFIL. [Concomitant]
     Active Substance: SILDENAFIL

REACTIONS (4)
  - Pharyngitis [None]
  - Blood test abnormal [None]
  - Upper respiratory tract infection [None]
  - Immunosuppression [None]

NARRATIVE: CASE EVENT DATE: 20160509
